FAERS Safety Report 15305580 (Version 1)
Quarter: 2018Q3

REPORT INFORMATION
  Report Type: Spontaneous
  Country: US (occurrence: US)
  Receive Date: 20180822
  Receipt Date: 20180822
  Transmission Date: 20181010
  Serious: No
  Sender: FDA-Public Use
  Company Number: US-ASTRAZENECA-2018SE95573

PATIENT
  Sex: Female
  Weight: 63.5 kg

DRUGS (2)
  1. SYMBICORT [Suspect]
     Active Substance: BUDESONIDE\FORMOTEROL FUMARATE DIHYDRATE
     Indication: SINUSITIS
     Dosage: 160/4.5 MCG 2 PUFFS AS NEEDED AS REQUIRED
     Route: 055
     Dates: start: 2016
  2. SYMBICORT [Suspect]
     Active Substance: BUDESONIDE\FORMOTEROL FUMARATE DIHYDRATE
     Indication: BRONCHITIS
     Dosage: 160/4.5 MCG 2 PUFFS AS NEEDED AS REQUIRED
     Route: 055
     Dates: start: 2016

REACTIONS (7)
  - Off label use [Unknown]
  - Dyspnoea [Unknown]
  - Product use issue [Unknown]
  - Device malfunction [Unknown]
  - Intentional product misuse [Unknown]
  - Hypersensitivity [Unknown]
  - Product use in unapproved indication [Unknown]
